FAERS Safety Report 23723096 (Version 1)
Quarter: 2024Q2

REPORT INFORMATION
  Report Type: Spontaneous
  Country: FR (occurrence: FR)
  Receive Date: 20240409
  Receipt Date: 20240409
  Transmission Date: 20240715
  Serious: Yes (Hospitalization, Other)
  Sender: FDA-Public Use
  Company Number: FR-Accord-418554

PATIENT
  Age: 46 Year

DRUGS (8)
  1. DOCETAXEL [Suspect]
     Active Substance: DOCETAXEL\DOCETAXEL ANHYDROUS
     Indication: Invasive breast carcinoma
     Dosage: STRENGTH: 160 MG/ 8ML; DAY 1 OF THE 1ST CURE
     Route: 042
     Dates: start: 20240215, end: 20240215
  2. PACLITAXEL [Suspect]
     Active Substance: PACLITAXEL
     Indication: Invasive breast carcinoma
     Dosage: STRENGTH: 600 MG/ 100ML; DAY 1 OF THE 1ST CURE
     Route: 042
     Dates: start: 20240125, end: 20240125
  3. HERCEPTIN [Suspect]
     Active Substance: TRASTUZUMAB
     Indication: Invasive breast carcinoma
     Route: 058
     Dates: start: 20240125, end: 20240125
  4. ONDANSETRON [Concomitant]
     Active Substance: ONDANSETRON
     Indication: Product used for unknown indication
     Route: 042
  5. SOLU-MEDROL [Concomitant]
     Active Substance: METHYLPREDNISOLONE SODIUM SUCCINATE
     Indication: Product used for unknown indication
     Route: 042
  6. RANITIDINE HYDROCHLORIDE [Concomitant]
     Active Substance: RANITIDINE HYDROCHLORIDE
     Indication: Product used for unknown indication
     Route: 042
  7. POLARAMINE [Concomitant]
     Active Substance: DEXCHLORPHENIRAMINE MALEATE
     Indication: Product used for unknown indication
     Route: 042
  8. PACLITAXEL [Suspect]
     Active Substance: PACLITAXEL
     Indication: Invasive breast carcinoma
     Dosage: STRENGTH: 600 MG/ 100ML; DAY 8 OF THE 1ST CURE
     Route: 042
     Dates: start: 20240201, end: 20240201

REACTIONS (10)
  - Dyspnoea [Unknown]
  - Oxygen saturation decreased [Unknown]
  - Hyperhidrosis [Unknown]
  - Abdominal pain [Unknown]
  - Anxiety [Unknown]
  - Limb discomfort [Unknown]
  - Tachycardia [Unknown]
  - Hypertension [Unknown]
  - Ocular hyperaemia [Unknown]
  - Swelling face [Unknown]

NARRATIVE: CASE EVENT DATE: 20240125
